FAERS Safety Report 8021854-6 (Version None)
Quarter: 2012Q1

REPORT INFORMATION
  Report Type: 
  Country: None (occurrence: None)
  Receive Date: 20120104
  Receipt Date: 20111227
  Transmission Date: 20120608
  Serious: Yes (Hospitalization)
  Sender: FDA-Public Use
  Company Number: US-BAYER-2011-028623

PATIENT
  Age: 44 Year
  Sex: Female
  Weight: 72 kg

DRUGS (6)
  1. TENORMIN [Concomitant]
     Indication: MITRAL VALVE PROLAPSE
     Dosage: UNK UNK, QD
  2. PROTONIX [Concomitant]
     Indication: GASTROOESOPHAGEAL REFLUX DISEASE
     Dosage: UNK UNK, QD
  3. YAZ [Suspect]
     Dosage: UNK
     Dates: start: 20060101, end: 20070101
  4. YASMIN [Suspect]
     Dosage: UNK
     Dates: start: 20060101, end: 20070101
  5. CLONAZEPAM [Concomitant]
     Dosage: UNK UNK, PRN
     Route: 048
     Dates: start: 20070322
  6. MOTRIN [Concomitant]
     Dosage: UNK
     Dates: start: 20110101, end: 20110101

REACTIONS (5)
  - DEEP VEIN THROMBOSIS [None]
  - ANXIETY [None]
  - PAIN [None]
  - MENTAL DISORDER [None]
  - EMOTIONAL DISTRESS [None]
